FAERS Safety Report 5382030-9 (Version None)
Quarter: 2007Q3

REPORT INFORMATION
  Report Type: 
  Country: None (occurrence: None)
  Receive Date: 20070709
  Receipt Date: 20070702
  Transmission Date: 20080115
  Serious: Yes (Other)
  Sender: FDA-Public Use
  Company Number: US-ASTRAZENECA-2006UW22175

PATIENT
  Age: 39 Year
  Sex: Female
  Weight: 86.4 kg

DRUGS (4)
  1. SEROQUEL [Suspect]
     Indication: DEPRESSION
     Route: 048
     Dates: end: 20060301
  2. SEROQUEL [Suspect]
     Indication: BIPOLAR DISORDER
     Route: 048
     Dates: end: 20060301
  3. SEROQUEL [Suspect]
     Indication: INSOMNIA
     Route: 048
     Dates: end: 20060301
  4. ZYPREXA [Concomitant]
     Dates: start: 20070101

REACTIONS (4)
  - BLOOD GLUCOSE ABNORMAL [None]
  - CHOLECYSTECTOMY [None]
  - DIABETES MELLITUS [None]
  - PANCREATITIS [None]
